FAERS Safety Report 13727380 (Version 21)
Quarter: 2021Q2

REPORT INFORMATION
  Report Type: Report from Study
  Country: CA (occurrence: CA)
  Receive Date: 20170707
  Receipt Date: 20210601
  Transmission Date: 20210716
  Serious: Yes (Life-Threatening, Hospitalization, Other)
  Sender: FDA-Public Use
  Company Number: PHHY2017CA071602

PATIENT
  Age: 84 Year
  Sex: Female

DRUGS (18)
  1. SANDOSTATIN LAR DEPOT [Suspect]
     Active Substance: OCTREOTIDE ACETATE
     Dosage: 60 MG, QMO
     Route: 030
     Dates: start: 20121031
  2. SANDOSTATIN LAR DEPOT [Suspect]
     Active Substance: OCTREOTIDE ACETATE
     Dosage: 60 MG, QMO
     Route: 030
  3. OCTREOTIDE. [Suspect]
     Active Substance: OCTREOTIDE
     Indication: PRODUCT USED FOR UNKNOWN INDICATION
     Dosage: UNK
     Route: 065
  4. ELIQUIS [Concomitant]
     Active Substance: APIXABAN
     Indication: PRODUCT USED FOR UNKNOWN INDICATION
     Dosage: UNK UNK, QD
     Route: 065
  5. TYLENOL [Concomitant]
     Active Substance: ACETAMINOPHEN
     Indication: PRODUCT USED FOR UNKNOWN INDICATION
     Dosage: UNK, PRN
     Route: 065
  6. FERAMAX [Concomitant]
     Active Substance: IRON\POLYSACCHARIDES
     Indication: MINERAL SUPPLEMENTATION
     Dosage: 150 MG, QD
     Route: 065
  7. LASIX [Concomitant]
     Active Substance: FUROSEMIDE
     Indication: PRODUCT USED FOR UNKNOWN INDICATION
     Dosage: UNK UNK, QD
     Route: 065
  8. SANDOSTATIN LAR DEPOT [Suspect]
     Active Substance: OCTREOTIDE ACETATE
     Indication: NEUROENDOCRINE CARCINOMA METASTATIC
     Dosage: 30 MG, QMO (EVERY 28 DAYS)
     Route: 030
     Dates: start: 20121031
  9. EVEROLIMUS. [Concomitant]
     Active Substance: EVEROLIMUS
     Dosage: 10 MG, QD
     Route: 065
     Dates: start: 20190312, end: 20190523
  10. OCTREOTIDE. [Suspect]
     Active Substance: OCTREOTIDE
  11. LAXATIVE [Concomitant]
     Active Substance: UNSPECIFIED INGREDIENT
     Indication: PRODUCT USED FOR UNKNOWN INDICATION
     Dosage: UNK
     Route: 065
  12. LASIX [Concomitant]
     Active Substance: FUROSEMIDE
     Dosage: UNK UNK, PRN
     Route: 065
  13. OCTREOTIDE. [Suspect]
     Active Substance: OCTREOTIDE
  14. METHOTREXATE. [Concomitant]
     Active Substance: METHOTREXATE
     Indication: PRODUCT USED FOR UNKNOWN INDICATION
     Dosage: UNK
     Route: 065
     Dates: start: 20161201
  15. FOLIC ACID. [Concomitant]
     Active Substance: FOLIC ACID
     Indication: PRODUCT USED FOR UNKNOWN INDICATION
     Dosage: 5 MG
     Route: 065
     Dates: start: 20161201
  16. EVEROLIMUS. [Concomitant]
     Active Substance: EVEROLIMUS
     Indication: PRODUCT USED FOR UNKNOWN INDICATION
     Dosage: UNK UNK, QD
     Route: 065
  17. SANDOSTATIN LAR DEPOT [Suspect]
     Active Substance: OCTREOTIDE ACETATE
     Dosage: 60 MG, QMO
     Route: 030
     Dates: start: 20171012, end: 20190724
  18. ZOPICLONE [Concomitant]
     Active Substance: ZOPICLONE
     Indication: PRODUCT USED FOR UNKNOWN INDICATION
     Dosage: UNK UNK, PRN (AT BED TIME AS NEEDED)
     Route: 065

REACTIONS (27)
  - Haemoglobin decreased [Recovering/Resolving]
  - Pleural effusion [Recovering/Resolving]
  - Induration [Recovering/Resolving]
  - Heart rate irregular [Unknown]
  - Blood pressure systolic increased [Unknown]
  - Pain [Recovering/Resolving]
  - Pallor [Unknown]
  - Decreased appetite [Unknown]
  - Malignant neoplasm progression [Unknown]
  - Peripheral swelling [Recovering/Resolving]
  - Hypokalaemic syndrome [Unknown]
  - Anxiety [Unknown]
  - Fatigue [Unknown]
  - Syncope [Recovered/Resolved]
  - Thrombosis [Unknown]
  - Haemoglobin decreased [Recovered/Resolved]
  - Contusion [Unknown]
  - Blood pressure increased [Recovering/Resolving]
  - Neuroendocrine carcinoma metastatic [Unknown]
  - Anaemia [Recovered/Resolved]
  - Diarrhoea [Unknown]
  - Abdominal pain upper [Unknown]
  - Small intestinal obstruction [Recovered/Resolved]
  - Joint swelling [Recovering/Resolving]
  - Dyspnoea [Unknown]
  - Erythema [Recovering/Resolving]
  - Fall [Recovered/Resolved]

NARRATIVE: CASE EVENT DATE: 201705
